FAERS Safety Report 6566960-8 (Version None)
Quarter: 2010Q1

REPORT INFORMATION
  Report Type: 
  Country: None (occurrence: None)
  Receive Date: 20100128
  Receipt Date: 20100122
  Transmission Date: 20100710
  Serious: Yes (Hospitalization, Other)
  Sender: FDA-Public Use
  Company Number: WAES 0911USA03410

PATIENT
  Age: 68 Year
  Sex: Male

DRUGS (10)
  1. CAP VORINOSTAT [Suspect]
     Indication: MULTIPLE MYELOMA
     Dosage: 400 MG/DAILY PO; 400 MG/DAILY PO; 400 MG/DAILY PO
     Route: 048
     Dates: start: 20091020, end: 20091023
  2. CAP VORINOSTAT [Suspect]
     Indication: MULTIPLE MYELOMA
     Dosage: 400 MG/DAILY PO; 400 MG/DAILY PO; 400 MG/DAILY PO
     Route: 048
     Dates: start: 20091113, end: 20091116
  3. CAP VORINOSTAT [Suspect]
     Indication: MULTIPLE MYELOMA
     Dosage: 400 MG/DAILY PO; 400 MG/DAILY PO; 400 MG/DAILY PO
     Route: 048
     Dates: start: 20091119, end: 20091120
  4. BORTEZOMIB [Suspect]
     Indication: MULTIPLE MYELOMA
     Dosage: 2.2 MG/M[2] IV; 1.3 MG/M[2] IV; 2.2 MG/M[2] IV;
     Route: 042
     Dates: start: 20091020, end: 20091023
  5. BORTEZOMIB [Suspect]
     Indication: MULTIPLE MYELOMA
     Dosage: 2.2 MG/M[2] IV; 1.3 MG/M[2] IV; 2.2 MG/M[2] IV;
     Route: 042
     Dates: start: 20091113, end: 20091116
  6. BORTEZOMIB [Suspect]
     Indication: MULTIPLE MYELOMA
     Dosage: 2.2 MG/M[2] IV; 1.3 MG/M[2] IV; 2.2 MG/M[2] IV;
     Route: 042
     Dates: start: 20091120, end: 20091120
  7. AMOXICILLIN AND CLAVULANATE POTASSIUM [Concomitant]
  8. ACYCLOVIR [Concomitant]
  9. BISOPROLOL [Concomitant]
  10. LANSOPRAZOLE [Concomitant]

REACTIONS (15)
  - ANAEMIA [None]
  - ASPARTATE AMINOTRANSFERASE INCREASED [None]
  - DIARRHOEA [None]
  - DISEASE PROGRESSION [None]
  - FEBRILE NEUTROPENIA [None]
  - HAEMOGLOBIN DECREASED [None]
  - HEADACHE [None]
  - HYPOTENSION [None]
  - INFECTION [None]
  - INTERNATIONAL NORMALISED RATIO INCREASED [None]
  - LOWER RESPIRATORY TRACT INFECTION [None]
  - PALPITATIONS [None]
  - PNEUMOCYSTIS JIROVECI PNEUMONIA [None]
  - PROTHROMBIN TIME PROLONGED [None]
  - TACHYCARDIA [None]
